FAERS Safety Report 9604729 (Version 1)
Quarter: 2013Q4

REPORT INFORMATION
  Report Type: Spontaneous
  Country: US (occurrence: US)
  Receive Date: 20131008
  Receipt Date: 20131008
  Transmission Date: 20140711
  Serious: No
  Sender: FDA-Public Use
  Company Number: US-PFIZER INC-2013287557

PATIENT
  Age: 81 Year
  Sex: Female
  Weight: 56.69 kg

DRUGS (9)
  1. LYRICA [Suspect]
     Indication: DIABETIC NEUROPATHY
     Dosage: UNK, SINGLE
     Route: 048
  2. NEURONTIN [Concomitant]
     Indication: DIABETIC NEUROPATHY
     Dosage: (400MG IN THE MORNING AND 800 MG IN THE NIGHT), 2X/DAY
  3. JANUVIA [Concomitant]
     Indication: DIABETES MELLITUS
     Dosage: 100 MG, 1X/DAY
  4. CELEBREX [Concomitant]
     Dosage: 200 MG, AS NEEDED
  5. SYNTHROID [Concomitant]
     Dosage: 88 UG, 1X/DAY
  6. METFORMIN [Concomitant]
     Indication: DIABETES MELLITUS
     Dosage: 500 MG, 4X/DAY
  7. LIPITOR [Concomitant]
     Indication: BLOOD CHOLESTEROL ABNORMAL
     Dosage: 20 MG, 1X/DAY
  8. PROCARDIA [Concomitant]
     Indication: ATRIAL FIBRILLATION
     Dosage: UNK
  9. PROCARDIA [Concomitant]
     Indication: HYPERTENSION

REACTIONS (2)
  - Dizziness [Recovered/Resolved]
  - Nausea [Recovered/Resolved]
